FAERS Safety Report 6898048-0 (Version None)
Quarter: 2010Q3

REPORT INFORMATION
  Report Type: 
  Country: None (occurrence: None)
  Receive Date: 20100802
  Receipt Date: 20070824
  Transmission Date: 20110219
  Serious: No
  Sender: FDA-Public Use
  Company Number: US-PFIZER INC-2007071869

PATIENT
  Age: 56 Year
  Sex: Male
  Weight: 132 kg

DRUGS (5)
  1. LYRICA [Suspect]
     Indication: PARAESTHESIA
     Dates: start: 20070822
  2. LYRICA [Suspect]
     Indication: HYPOAESTHESIA
  3. PHENOBARBITAL TAB [Suspect]
     Dates: start: 20070812
  4. NEXIUM [Concomitant]
  5. LORAZEPAM [Concomitant]
     Dates: start: 20070813

REACTIONS (1)
  - DRUG SCREEN FALSE POSITIVE [None]
